FAERS Safety Report 9725800 (Version 1)
Quarter: 2013Q4

REPORT INFORMATION
  Report Type: Spontaneous
  Country: US (occurrence: US)
  Receive Date: 20131203
  Receipt Date: 20131203
  Transmission Date: 20140711
  Serious: Yes (Other)
  Sender: FDA-Public Use
  Company Number: US-ASTELLAS-2013US012329

PATIENT
  Age: 73 Year
  Sex: Female

DRUGS (2)
  1. MYRBETRIQ [Suspect]
     Indication: PRODUCT USED FOR UNKNOWN INDICATION
     Dosage: 50 MG, UNKNOWN/D
     Route: 048
     Dates: start: 20130823
  2. NORTRIPTYLINE [Interacting]
     Indication: PRODUCT USED FOR UNKNOWN INDICATION

REACTIONS (7)
  - Intentional drug misuse [Unknown]
  - Drug interaction [Unknown]
  - Ocular icterus [Unknown]
  - Alopecia [Unknown]
  - Local swelling [Unknown]
  - Pruritus generalised [Unknown]
  - Vaginal infection [Unknown]
